FAERS Safety Report 23942572 (Version 1)
Quarter: 2024Q2

REPORT INFORMATION
  Report Type: Spontaneous
  Country: US (occurrence: US)
  Receive Date: 20240605
  Receipt Date: 20240605
  Transmission Date: 20240716
  Serious: No
  Sender: FDA-Public Use
  Company Number: US-AMGEN-USASP2024104122

PATIENT
  Sex: Female
  Weight: 65.76 kg

DRUGS (5)
  1. TEPEZZA [Suspect]
     Active Substance: TEPROTUMUMAB-TRBW
     Indication: Toxic goitre
     Dosage: 20 MILLIGRAM/KILOGRAM (1288 MG), Q3WK
     Route: 042
  2. SODIUM CHLORIDE [Concomitant]
     Active Substance: SODIUM CHLORIDE
     Dosage: UNK, 0.9 %
     Route: 065
  3. IBUPROFEN [Concomitant]
     Active Substance: IBUPROFEN
     Dosage: 200 MILLIGRAM
     Route: 065
  4. STERILE WATER [Concomitant]
     Active Substance: WATER
  5. SODIUM CHLORIDE [Concomitant]
     Active Substance: SODIUM CHLORIDE

REACTIONS (5)
  - Vision blurred [Unknown]
  - Photosensitivity reaction [Unknown]
  - Tension headache [Unknown]
  - Diplopia [Unknown]
  - Off label use [Unknown]
